FAERS Safety Report 4339066-6 (Version None)
Quarter: 2004Q2

REPORT INFORMATION
  Report Type: 
  Country: None (occurrence: None)
  Receive Date: 20040412
  Receipt Date: 20040402
  Transmission Date: 20050107
  Serious: Yes (Hospitalization)
  Sender: FDA-Public Use
  Company Number: 04P-163-0255924-00

PATIENT
  Age: 55 Year
  Sex: Female
  Weight: 71.6683 kg

DRUGS (7)
  1. HUMIRA [Suspect]
     Indication: RHEUMATOID ARTHRITIS
     Dosage: 40 MG, 1 IN 2 WK, SUBCUTANEOUS
     Route: 058
     Dates: start: 20030301, end: 20040204
  2. METHOTREXATE [Concomitant]
  3. PREDNISONE [Concomitant]
  4. PROPACET 100 [Concomitant]
  5. PAROXETINE HCL [Concomitant]
  6. ESOMEPRAZOLE [Concomitant]
  7. FOLIC ACID [Concomitant]

REACTIONS (4)
  - ARTHRITIS INFECTIVE [None]
  - CYST RUPTURE [None]
  - POSTOPERATIVE INFECTION [None]
  - SYNOVIAL DISORDER [None]
